FAERS Safety Report 5669279-2 (Version None)
Quarter: 2008Q1

REPORT INFORMATION
  Report Type: 
  Country: None (occurrence: None)
  Receive Date: 20080313
  Receipt Date: 20080313
  Transmission Date: 20080703
  Serious: No
  Sender: FDA-Public Use
  Company Number: None

PATIENT
  Age: 18 Year
  Sex: Male
  Weight: 68.0396 kg

DRUGS (1)
  1. PREDNISONE 50MG TAB [Suspect]
     Indication: LEUKAEMIA
     Dosage: 75 MG, 3 TIMES A DAY FOR 5 DAY EVERY 3 WEEKS PO
     Route: 048
     Dates: start: 20061201

REACTIONS (1)
  - OSTEONECROSIS [None]
